FAERS Safety Report 10163020 (Version 1)
Quarter: 2014Q2

REPORT INFORMATION
  Report Type: Spontaneous
  Country: US (occurrence: US)
  Receive Date: 20140509
  Receipt Date: 20140509
  Transmission Date: 20141212
  Serious: No
  Sender: FDA-Public Use
  Company Number: US-PFIZER INC-2014123944

PATIENT
  Age: 37 Year
  Sex: Female

DRUGS (7)
  1. MORPHINE SULFATE [Suspect]
     Dosage: UNK
  2. PROZAC [Suspect]
     Dosage: UNK
  3. LAMICTAL [Suspect]
     Dosage: UNK
  4. OMEPRAZOLE [Suspect]
     Dosage: UNK
  5. VITAMIN D [Suspect]
     Dosage: UNK
  6. TIZANIDINE [Suspect]
     Dosage: UNK
  7. WELLBUTRIN [Suspect]
     Dosage: UNK

REACTIONS (1)
  - Drug hypersensitivity [Unknown]
